FAERS Safety Report 8230358-7 (Version None)
Quarter: 2012Q1

REPORT INFORMATION
  Report Type: 
  Country: None (occurrence: None)
  Receive Date: 20120323
  Receipt Date: 20120319
  Transmission Date: 20120608
  Serious: Yes (Death)
  Sender: FDA-Public Use
  Company Number: RS-JNJFOC-20110105060

PATIENT
  Age: 36 Year
  Sex: Male

DRUGS (8)
  1. RISPERIDONE [Suspect]
     Indication: SCHIZOAFFECTIVE DISORDER
     Route: 030
     Dates: start: 20080915
  2. RISPERIDONE [Suspect]
     Indication: SCHIZOPHRENIA
     Route: 030
     Dates: start: 20080915
  3. ALPRAZOLAM [Concomitant]
     Dosage: IN THE EVENING
     Route: 065
  4. UNKNOWN MEDICATION [Concomitant]
     Route: 065
  5. LITHIUM CARBONATE [Concomitant]
     Route: 065
  6. CLOZAPINE [Concomitant]
     Route: 065
  7. RISPERIDONE [Suspect]
     Indication: PSYCHOTIC DISORDER
     Route: 030
     Dates: start: 20080915
  8. MIDAZOLAM [Concomitant]
     Route: 065

REACTIONS (1)
  - EMPHYSEMA [None]
